FAERS Safety Report 4359574-1 (Version None)
Quarter: 2004Q2

REPORT INFORMATION
  Report Type: 
  Country: None (occurrence: None)
  Receive Date: 20040517
  Receipt Date: 20040517
  Transmission Date: 20050107
  Serious: Yes (Hospitalization)
  Sender: FDA-Public Use
  Company Number: None

PATIENT
  Age: 64 Year
  Sex: Female

DRUGS (1)
  1. ASPIRIN [Suspect]
     Indication: BACK PAIN
     Dosage: 3 TABS QD-BID ORAL
     Route: 048
     Dates: start: 19900101, end: 20040509

REACTIONS (1)
  - GASTROINTESTINAL HAEMORRHAGE [None]
